FAERS Safety Report 9369859 (Version 2)
Quarter: 2013Q3

REPORT INFORMATION
  Report Type: Spontaneous
  Country: US (occurrence: US)
  Receive Date: 20130626
  Receipt Date: 20130802
  Transmission Date: 20140515
  Serious: Yes (Other)
  Sender: FDA-Public Use
  Company Number: US-JNJFOC-20130614395

PATIENT
  Sex: 0

DRUGS (4)
  1. DOXORUBICIN [Suspect]
     Indication: NEUROBLASTOMA
     Dosage: DAY 0 AND DAY 1,
     Route: 042
  2. CYCLOPHOSPHAMIDE [Suspect]
     Indication: NEUROBLASTOMA
     Dosage: ON DAYS 0 AND 1
     Route: 065
  3. VINCRISTINE [Suspect]
     Indication: NEUROBLASTOMA
     Dosage: DAY 0 AND DAY 1
     Route: 065
  4. G-CSF [Concomitant]
     Indication: NEUROBLASTOMA
     Dosage: 5 MCG/KG/DAY THRU NADIR
     Route: 065

REACTIONS (9)
  - Pulmonary toxicity [Unknown]
  - Haematotoxicity [Unknown]
  - Stomatitis [Unknown]
  - Nausea [Unknown]
  - Vomiting [Unknown]
  - Abdominal pain [Unknown]
  - Constipation [Unknown]
  - Diarrhoea [Unknown]
  - Off label use [Unknown]
